FAERS Safety Report 5908028-7 (Version None)
Quarter: 2008Q4

REPORT INFORMATION
  Report Type: 
  Country: None (occurrence: None)
  Receive Date: 20081003
  Receipt Date: 20080929
  Transmission Date: 20090506
  Serious: Yes (Other)
  Sender: FDA-Public Use
  Company Number: AU-B.I. PHARMACEUTICALS,INC./RIDGEFIELD-2008-BP-15137AU

PATIENT
  Sex: Male

DRUGS (1)
  1. CATAPRES [Suspect]

REACTIONS (1)
  - DRUG ABUSE [None]
